FAERS Safety Report 8870151 (Version 1)
Quarter: 2012Q4

REPORT INFORMATION
  Report Type: Spontaneous
  Country: US (occurrence: None)
  Receive Date: 20121025
  Receipt Date: 20121025
  Transmission Date: 20130627
  Serious: No
  Sender: FDA-Public Use
  Company Number: None

PATIENT

DRUGS (2)
  1. ISOSORBIDE MONONITRATE [Suspect]
     Indication: CORONARY HEART DISEASE
     Route: 048
     Dates: start: 20120928, end: 20121128
  2. ISOSORBIDE MONONITRATE [Suspect]
     Indication: CARDIOVASCULAR DISEASE, UNSPECIFIED
     Route: 048
     Dates: start: 20120928, end: 20121128

REACTIONS (3)
  - Product quality issue [None]
  - Product taste abnormal [None]
  - Product odour abnormal [None]
